FAERS Safety Report 6449139-X (Version None)
Quarter: 2009Q4

REPORT INFORMATION
  Report Type: 
  Country: None (occurrence: None)
  Receive Date: 20091120
  Receipt Date: 20091109
  Transmission Date: 20100525
  Serious: Yes (Congenital Anomaly)
  Sender: FDA-Public Use
  Company Number: GB-MERCK-0910GBR00060

PATIENT
  Age: 0 Day

DRUGS (7)
  1. ISENTRESS [Suspect]
     Route: 064
     Dates: start: 20081023
  2. DARUNAVIR [Concomitant]
     Route: 064
     Dates: start: 20081023
  3. ETRAVIRINE [Concomitant]
     Route: 064
     Dates: start: 20081023
  4. RITONAVIR [Concomitant]
     Route: 064
     Dates: start: 20060905
  5. RITONAVIR [Concomitant]
     Route: 064
     Dates: start: 20081023
  6. EMTRICITABINE AND TENOFOVIR DISOPROXIL FUMARATE [Concomitant]
     Route: 064
     Dates: start: 20060905, end: 20081023
  7. TIPRANAVIR [Concomitant]
     Route: 064
     Dates: start: 20060905, end: 20081023

REACTIONS (4)
  - ANAL ATRESIA [None]
  - BLADDER AGENESIS [None]
  - DEFORMITY [None]
  - EXOMPHALOS [None]
